FAERS Safety Report 24274024 (Version 1)
Quarter: 2024Q3

REPORT INFORMATION
  Report Type: Spontaneous
  Country: US (occurrence: US)
  Receive Date: 20240902
  Receipt Date: 20240902
  Transmission Date: 20241016
  Serious: Yes (Other)
  Sender: DR REDDYS
  Company Number: US-DRL-USA-SPO/USA/24/0012562

PATIENT
  Age: 62 Year
  Sex: Male

DRUGS (8)
  1. APREMILAST [Suspect]
     Active Substance: APREMILAST
     Indication: Psoriasis
  2. APREMILAST [Suspect]
     Active Substance: APREMILAST
     Indication: Psoriatic arthropathy
  3. DOXYCYCLINE [Suspect]
     Active Substance: DOXYCYCLINE\DOXYCYCLINE HYCLATE
     Indication: Dermatitis bullous
     Route: 048
  4. NEOSPORIN [Concomitant]
     Active Substance: BACITRACIN ZINC\NEOMYCIN SULFATE\POLYMYXIN B SULFATE
     Indication: Dermatitis bullous
     Route: 048
  5. SECUKINUMAB [Concomitant]
     Active Substance: SECUKINUMAB
     Indication: Psoriasis
  6. SECUKINUMAB [Concomitant]
     Active Substance: SECUKINUMAB
     Indication: Psoriatic arthropathy
  7. ADALIMUMAB [Concomitant]
     Active Substance: ADALIMUMAB
     Indication: Psoriasis
  8. ADALIMUMAB [Concomitant]
     Active Substance: ADALIMUMAB
     Indication: Psoriatic arthropathy

REACTIONS (1)
  - Drug ineffective for unapproved indication [Unknown]
